FAERS Safety Report 5302117-6 (Version None)
Quarter: 2007Q2

REPORT INFORMATION
  Report Type: 
  Country: None (occurrence: None)
  Receive Date: 20070419
  Receipt Date: 20070412
  Transmission Date: 20071010
  Serious: Yes (Hospitalization)
  Sender: FDA-Public Use
  Company Number: FR-GLAXOSMITHKLINE-B0466637A

PATIENT
  Age: 69 Year
  Sex: Female

DRUGS (11)
  1. CLAVENTIN [Suspect]
     Indication: PSEUDOMONAS INFECTION
     Dosage: 600MG PER DAY
     Route: 042
     Dates: start: 20070213, end: 20070221
  2. OROCAL [Concomitant]
     Route: 048
  3. OFLOCET [Concomitant]
     Indication: PSEUDOMONAS INFECTION
     Route: 048
     Dates: start: 20070213
  4. LANTUS [Concomitant]
     Route: 042
  5. OMEPRAZOLE [Concomitant]
     Route: 048
  6. TOPALGIC ( FRANCE ) [Concomitant]
     Route: 048
  7. FORLAX [Concomitant]
  8. BUFLOMEDIL [Concomitant]
  9. LANSOYL [Concomitant]
  10. LOVENOX [Concomitant]
  11. CORTANCYL 20 [Concomitant]

REACTIONS (5)
  - ANAEMIA MACROCYTIC [None]
  - BLOOD LACTATE DEHYDROGENASE INCREASED [None]
  - COOMBS TEST POSITIVE [None]
  - HAEMOLYTIC ANAEMIA [None]
  - HAPTOGLOBIN DECREASED [None]
